FAERS Safety Report 6976004-1 (Version None)
Quarter: 2010Q3

REPORT INFORMATION
  Report Type: 
  Country: None (occurrence: None)
  Receive Date: 20100910
  Receipt Date: 20100830
  Transmission Date: 20110219
  Serious: Yes (Hospitalization)
  Sender: FDA-Public Use
  Company Number: US-BAYER-201010377NA

PATIENT
  Age: 34 Year
  Sex: Female
  Weight: 91 kg

DRUGS (18)
  1. YAZ [Suspect]
     Indication: PRODUCT USED FOR UNKNOWN INDICATION
     Route: 048
     Dates: start: 20070501, end: 20071101
  2. ANTIBIOTICS [Concomitant]
     Dates: start: 20050101, end: 20080101
  3. MAXZIDE [Concomitant]
     Dates: start: 20050101
  4. ADVIL LIQUI-GELS [Concomitant]
  5. ALEVE (CAPLET) [Concomitant]
  6. MOTRIN [Concomitant]
  7. ULTRAM [Concomitant]
     Indication: NECK PAIN
  8. DARVOCET [Concomitant]
     Indication: NECK PAIN
  9. FLEXERIL [Concomitant]
     Indication: NECK PAIN
  10. MOBIC [Concomitant]
     Indication: NECK PAIN
  11. MEDROL [Concomitant]
     Indication: NECK PAIN
  12. TOPROL-XL [Concomitant]
  13. MAXIDEX [Concomitant]
  14. VICODIN [Concomitant]
  15. PARAFON FORTE [Concomitant]
     Route: 048
  16. LYRICA [Concomitant]
     Route: 048
  17. NAPRELAN [Concomitant]
     Dosage: UNIT DOSE: 375 MG
     Route: 048
  18. HYDROCODONE [Concomitant]
     Dosage: UP TO 1 TABLET Q.D. P.R.N

REACTIONS (5)
  - DEEP VEIN THROMBOSIS [None]
  - GAIT DISTURBANCE [None]
  - MUSCLE SPASMS [None]
  - PAIN IN EXTREMITY [None]
  - PULMONARY EMBOLISM [None]
